FAERS Safety Report 13467886 (Version 2)
Quarter: 2017Q2

REPORT INFORMATION
  Report Type: Spontaneous
  Country: US (occurrence: US)
  Receive Date: 20170421
  Receipt Date: 20170516
  Transmission Date: 20170830
  Serious: No
  Sender: FDA-Public Use
  Company Number: US-BAYER-2017-074652

PATIENT
  Age: 73 Year
  Sex: Female

DRUGS (2)
  1. GADAVIST [Suspect]
     Active Substance: GADOBUTROL
     Indication: NUCLEAR MAGNETIC RESONANCE IMAGING
  2. GADAVIST [Suspect]
     Active Substance: GADOBUTROL
     Indication: VITH NERVE PARALYSIS
     Dosage: UNK UNK, ONCE
     Dates: start: 20170405, end: 20170405

REACTIONS (2)
  - Nausea [Recovered/Resolved]
  - Urticaria [None]

NARRATIVE: CASE EVENT DATE: 20170405
